FAERS Safety Report 10442529 (Version 2)
Quarter: 2014Q3

REPORT INFORMATION
  Report Type: Spontaneous
  Country: US (occurrence: None)
  Receive Date: 20140908
  Receipt Date: 20140922
  Transmission Date: 20150326
  Serious: Yes (Hospitalization)
  Sender: FDA-Public Use
  Company Number: VAL_03362_2014

PATIENT
  Sex: Female

DRUGS (17)
  1. CARVEDILOL. [Suspect]
     Active Substance: CARVEDILOL
     Indication: PRODUCT USED FOR UNKNOWN INDICATION
     Dosage: (DF)
  2. EDARBI [Suspect]
     Active Substance: AZILSARTAN KAMEDOXOMIL
     Indication: PRODUCT USED FOR UNKNOWN INDICATION
     Dosage: (DF)
  3. LEVAQUIN [Suspect]
     Active Substance: LEVOFLOXACIN
     Indication: PRODUCT USED FOR UNKNOWN INDICATION
     Dosage: (DF)
  4. LEVOTHYROXINE [Suspect]
     Active Substance: LEVOTHYROXINE
     Indication: PRODUCT USED FOR UNKNOWN INDICATION
     Dosage: (DF)
  5. DIOVAN [Suspect]
     Active Substance: VALSARTAN
     Indication: HYPERTENSION
     Dosage: (AFTER LUNCH AND AT BEDTIME)
     Dates: start: 1994
  6. ALLEGRA [Concomitant]
     Active Substance: FEXOFENADINE HYDROCHLORIDE
  7. PAPAYA ENZYME / 01603201 / [Concomitant]
  8. METOPROLOL [Suspect]
     Active Substance: METOPROLOL
     Indication: PRODUCT USED FOR UNKNOWN INDICATION
     Dosage: (DF)
  9. TOPROL XL [Suspect]
     Active Substance: METOPROLOL SUCCINATE
     Indication: PRODUCT USED FOR UNKNOWN INDICATION
     Dosage: (DF)
  10. DICYCLOMINE /00068601/ [Suspect]
     Active Substance: DICYCLOMINE HYDROCHLORIDE
     Indication: IRRITABLE BOWEL SYNDROME
     Dosage: (DF)
  11. SYNTHROID [Concomitant]
     Active Substance: LEVOTHYROXINE SODIUM
  12. BIFIDOBACTERIUM LACTIS [Concomitant]
  13. ASPIRIN. [Concomitant]
     Active Substance: ASPIRIN
  14. VERAPAMIL [Suspect]
     Active Substance: VERAPAMIL HYDROCHLORIDE
     Indication: PRODUCT USED FOR UNKNOWN INDICATION
     Dosage: (DF)
  15. NORVASC [Concomitant]
     Active Substance: AMLODIPINE BESYLATE
  16. PRILOSEC / 00661201 / [Concomitant]
  17. VALSARTAN. [Suspect]
     Active Substance: VALSARTAN
     Indication: PRODUCT USED FOR UNKNOWN INDICATION
     Dosage: (DF)

REACTIONS (11)
  - Irritable bowel syndrome [None]
  - Visual impairment [None]
  - Drug ineffective [None]
  - Blood pressure inadequately controlled [None]
  - Memory impairment [None]
  - Discomfort [None]
  - Thyroid disorder [None]
  - Abdominal discomfort [None]
  - Eye disorder [None]
  - Blood pressure increased [None]
  - Product quality issue [None]
